FAERS Safety Report 8160114 (Version 2)
Quarter: 2013Q3

REPORT INFORMATION
  Report Type: Spontaneous
  Country: US (occurrence: US)
  Receive Date: 20110928
  Receipt Date: 20130806
  Transmission Date: 20140515
  Serious: Yes (Hospitalization)
  Sender: FDA-Public Use
  Company Number: US-GLAXOSMITHKLINE-A0829274A

PATIENT
  Age: 66 Year
  Sex: Male
  Weight: 86.4 kg

DRUGS (6)
  1. AVANDIA [Suspect]
     Indication: DIABETES MELLITUS
     Dosage: 8MG UNKNOWN
     Route: 048
     Dates: start: 200107, end: 2009
  2. GLUCOPHAGE XR [Concomitant]
  3. GLYBURIDE [Concomitant]
  4. COMBIVENT [Concomitant]
  5. AZMACORT [Concomitant]
  6. CARDIZEM [Concomitant]

REACTIONS (3)
  - Myocardial infarction [Unknown]
  - Coronary artery disease [Unknown]
  - Cardiac failure congestive [Unknown]
